FAERS Safety Report 22118483 (Version 6)
Quarter: 2023Q2

REPORT INFORMATION
  Report Type: Spontaneous
  Country: US (occurrence: None)
  Receive Date: 20230321
  Receipt Date: 20230419
  Transmission Date: 20230722
  Serious: Yes (Other)
  Sender: FDA-Public Use
  Company Number: US-ROCHE-3307441

PATIENT
  Age: 67 Year
  Sex: Female

DRUGS (2)
  1. VABYSMO [Suspect]
     Active Substance: FARICIMAB-SVOA
     Indication: Neovascular age-related macular degeneration
     Dosage: 6 MG IN EACH EYE
     Route: 050
     Dates: start: 20220317
  2. LUCENTIS [Suspect]
     Active Substance: RANIBIZUMAB
     Indication: Neovascular age-related macular degeneration
     Dosage: APPROXIMATE 5 ML
     Route: 050
     Dates: start: 202105, end: 202108

REACTIONS (7)
  - Cataract operation [Unknown]
  - Drug ineffective [Unknown]
  - Eye pain [Unknown]
  - Eye haemorrhage [Unknown]
  - Spider naevus [Not Recovered/Not Resolved]
  - Off label use [Unknown]
  - Off label use [Unknown]

NARRATIVE: CASE EVENT DATE: 20220101
